FAERS Safety Report 18193458 (Version 1)
Quarter: 2020Q3

REPORT INFORMATION
  Report Type: Spontaneous
  Country: US (occurrence: US)
  Receive Date: 20200825
  Receipt Date: 20200825
  Transmission Date: 20201103
  Serious: No
  Sender: FDA-Public Use
  Company Number: US-009507513-2008USA010190

PATIENT
  Age: 36 Year
  Sex: Female

DRUGS (8)
  1. GANIRELIX ACETATE INJECTION [Concomitant]
     Active Substance: GANIRELIX ACETATE
     Dosage: UNK
  2. FOLLISTIM AQ [Suspect]
     Active Substance: FOLLITROPIN
  3. STERILE DILUENT (WATER) [Suspect]
     Active Substance: WATER
     Indication: INFERTILITY FEMALE
     Dosage: UNK
     Route: 030
     Dates: start: 20200625
  4. DOXYCYCLINE. [Concomitant]
     Active Substance: DOXYCYCLINE
     Dosage: UNK
  5. PREGNYL [Suspect]
     Active Substance: CHORIOGONADOTROPIN ALFA
     Indication: INFERTILITY FEMALE
     Dosage: AS DIRECTED, WHEN DIRECTED, 10000 UNIT MDV
     Route: 030
     Dates: start: 20200625
  6. LEUPROLIDE [Concomitant]
     Active Substance: LEUPROLIDE
     Dosage: UNK
  7. FOLLISTIM AQ [Suspect]
     Active Substance: FOLLITROPIN
     Indication: INFERTILITY FEMALE
     Dosage: 450 INTERNATIONAL UNIT, QD, 900 IU/ 1.08 ML
     Route: 058
     Dates: start: 20200625
  8. GONADOTROPIN, CHORIONIC [Concomitant]
     Active Substance: CHORIOGONADOTROPIN ALFA
     Dosage: LOW DOSE

REACTIONS (2)
  - Weight increased [Unknown]
  - Mood altered [Unknown]

NARRATIVE: CASE EVENT DATE: 202007
